FAERS Safety Report 9468484 (Version 2)
Quarter: 2013Q3

REPORT INFORMATION
  Report Type: Spontaneous
  Country: IT (occurrence: IT)
  Receive Date: 20130821
  Receipt Date: 20130924
  Transmission Date: 20140515
  Serious: Yes (Hospitalization)
  Sender: FDA-Public Use
  Company Number: IT-TEVA-425934ISR

PATIENT
  Age: 52 Year
  Sex: Male

DRUGS (6)
  1. CARBOPLATINO TEVA [Suspect]
     Dosage: 568 MG CYCLICAL
     Route: 041
     Dates: start: 20130522, end: 20130613
  2. ERBITUX [Suspect]
     Dosage: 470 MG CYCLICAL
     Route: 041
     Dates: start: 20130522, end: 20130613
  3. TRIMETON [Concomitant]
     Indication: PROPHYLAXIS
     Dosage: 10 MILLIGRAM DAILY;
     Route: 042
     Dates: start: 20130613, end: 20130613
  4. DESAMETASONE FOSFATO HOSPIRA [Concomitant]
     Indication: PROPHYLAXIS
     Dosage: 8 MILLIGRAM DAILY;
     Route: 042
     Dates: start: 20130613, end: 20130613
  5. RANIDIL [Concomitant]
     Indication: PROPHYLAXIS
     Dosage: 50 MILLIGRAM DAILY;
     Route: 042
     Dates: start: 20130613, end: 20130613
  6. ONDANSETRON KABI [Concomitant]
     Indication: PROPHYLAXIS OF NAUSEA AND VOMITING
     Dosage: 8 MILLIGRAM DAILY;
     Route: 042
     Dates: start: 20130613, end: 20130613

REACTIONS (3)
  - Flushing [Recovered/Resolved]
  - Dyspnoea [Recovered/Resolved]
  - Cyanosis [Recovered/Resolved]
